FAERS Safety Report 14904261 (Version 1)
Quarter: 2018Q2

REPORT INFORMATION
  Report Type: Report from Study
  Country: FR (occurrence: FR)
  Receive Date: 20180516
  Receipt Date: 20180516
  Transmission Date: 20180711
  Serious: Yes (Hospitalization, Disabling)
  Sender: FDA-Public Use
  Company Number: FR-AMGEN-FRACT2018065619

PATIENT
  Age: 60 Year
  Sex: Female
  Weight: 88 kg

DRUGS (14)
  1. PROCORALAN [Concomitant]
     Active Substance: IVABRADINE
     Dosage: 5 MG, UNK
     Route: 048
     Dates: start: 20140425
  2. ESIDREX [Concomitant]
     Active Substance: HYDROCHLOROTHIAZIDE
     Dosage: 12.5 MG, UNK
     Route: 048
     Dates: start: 20140425
  3. EZETROL [Concomitant]
     Active Substance: EZETIMIBE
     Dosage: 10 MG, UNK
     Route: 048
     Dates: start: 201308
  4. CRESTOR [Concomitant]
     Active Substance: ROSUVASTATIN CALCIUM
     Indication: DYSLIPIDAEMIA
     Dosage: 20 MG, UNK
     Dates: start: 201302
  5. THERALENE [Concomitant]
     Active Substance: TRIMEPRAZINE
     Dosage: 45 GTT, UNK
     Route: 048
     Dates: start: 20161220
  6. PARACETAMOL [Concomitant]
     Active Substance: ACETAMINOPHEN
     Dosage: 1 UNK, UNK
     Route: 048
     Dates: start: 20171223
  7. CLOPIDOGREL [Concomitant]
     Active Substance: CLOPIDOGREL BISULFATE
     Dosage: UNK
  8. ALDACTONE [Concomitant]
     Active Substance: SPIRONOLACTONE
     Dosage: 12.5 MG, UNK
     Route: 048
     Dates: start: 20170919
  9. EXOMUC [Concomitant]
     Active Substance: ACETYLCYSTEINE
     Dosage: 1 UNK, UNK
     Route: 048
     Dates: start: 20171223
  10. EVOLOCUMAB [Suspect]
     Active Substance: EVOLOCUMAB
     Indication: DYSLIPIDAEMIA
     Dosage: UNK
     Route: 058
     Dates: start: 20170719
  11. INSULIN [Concomitant]
     Active Substance: INSULIN NOS
     Dosage: UNK
  12. PREFILLED AUTOINJECTOR/PEN [Suspect]
     Active Substance: DEVICE
     Indication: DYSLIPIDAEMIA
     Dosage: UNK
     Route: 058
     Dates: start: 20170719
  13. ATARAX [Concomitant]
     Active Substance: HYDROXYZINE HYDROCHLORIDE
     Dosage: 25 MG, UNK
     Route: 048
     Dates: start: 20140425
  14. EUPRESSYL [Concomitant]
     Active Substance: URAPIDIL
     Dosage: 60 MG, UNK
     Route: 048
     Dates: start: 20150831

REACTIONS (1)
  - Ischaemic stroke [Not Recovered/Not Resolved]

NARRATIVE: CASE EVENT DATE: 20180412
